FAERS Safety Report 8578045-X (Version None)
Quarter: 2012Q3

REPORT INFORMATION
  Report Type: 
  Country: None (occurrence: None)
  Receive Date: 20120808
  Receipt Date: 20120802
  Transmission Date: 20120928
  Serious: Yes (Hospitalization, Other)
  Sender: FDA-Public Use
  Company Number: PHHY2012MX067517

PATIENT
  Sex: Male

DRUGS (2)
  1. OMEPRAZOLE [Concomitant]
     Indication: GASTRIC DISORDER
     Dosage: UNK UKN, QD
     Dates: start: 20120101
  2. DIOVAN [Suspect]
     Indication: HYPERTENSION
     Dosage: 2 DF (160MG) DAILY
     Dates: start: 20110801, end: 20120101

REACTIONS (2)
  - DIALYSIS [None]
  - HYPERGLYCAEMIA [None]
